FAERS Safety Report 5128491-1 (Version None)
Quarter: 2006Q4

REPORT INFORMATION
  Report Type: 
  Country: None (occurrence: None)
  Receive Date: 20061017
  Receipt Date: 20060928
  Transmission Date: 20070319
  Serious: Yes (Other)
  Sender: FDA-Public Use
  Company Number: CN-ROCHE-465929

PATIENT
  Age: 27 Year
  Sex: Female

DRUGS (1)
  1. PEGASYS [Suspect]
     Indication: HEPATITIS B
     Dosage: ADMINISTERED PER WEEK. ROUTE OF ADMINISTRATION REPORTED AS HYPODERMIC.
     Route: 050
     Dates: start: 20060315

REACTIONS (1)
  - LYMPHOID TISSUE HYPERPLASIA [None]
